FAERS Safety Report 5070082-5 (Version None)
Quarter: 2006Q3

REPORT INFORMATION
  Report Type: 
  Country: None (occurrence: None)
  Receive Date: 20060803
  Receipt Date: 20060724
  Transmission Date: 20061208
  Serious: Yes (Other)
  Sender: FDA-Public Use
  Company Number: GR-BRISTOL-MYERS SQUIBB COMPANY-13451554

PATIENT
  Age: 47 Year
  Sex: Female

DRUGS (5)
  1. CARBOPLATIN [Suspect]
     Indication: OVARIAN CANCER
  2. CISPLATIN [Suspect]
     Indication: OVARIAN CANCER
  3. PACLITAXEL [Suspect]
     Indication: OVARIAN CANCER
  4. EPIRUBICIN [Suspect]
     Indication: OVARIAN CANCER
  5. GEMCITABINE [Suspect]

REACTIONS (1)
  - METASTASES TO BONE [None]
